FAERS Safety Report 15783631 (Version 1)
Quarter: 2019Q1

REPORT INFORMATION
  Report Type: Spontaneous
  Country: TR (occurrence: TR)
  Receive Date: 20190102
  Receipt Date: 20190102
  Transmission Date: 20190417
  Serious: Yes (Other)
  Sender: FDA-Public Use
  Company Number: TR-PFIZER INC-2018489189

PATIENT
  Age: 24 Year
  Sex: Male

DRUGS (2)
  1. LYRICA [Suspect]
     Active Substance: PREGABALIN
     Indication: NEURALGIA
     Dosage: 300 MG, 2X/DAY
     Dates: start: 2018, end: 2018
  2. LYRICA [Suspect]
     Active Substance: PREGABALIN
     Dosage: 75 MG, UNK (GRADUALLY REDUCED TO 75 MG)
     Dates: start: 2018, end: 2018

REACTIONS (10)
  - Depression [Recovered/Resolved]
  - Drug dependence [Unknown]
  - Withdrawal syndrome [Unknown]
  - Drug tolerance [Unknown]
  - Nervousness [Recovered/Resolved]
  - Speech disorder [Not Recovered/Not Resolved]
  - Restlessness [Unknown]
  - Boredom [Recovered/Resolved]
  - Insomnia [Unknown]
  - Muscle contractions involuntary [Unknown]

NARRATIVE: CASE EVENT DATE: 2018
